FAERS Safety Report 5038183-5 (Version None)
Quarter: 2006Q2

REPORT INFORMATION
  Report Type: 
  Country: None (occurrence: None)
  Receive Date: 20060623
  Receipt Date: 20060616
  Transmission Date: 20061013
  Serious: Yes (Life-Threatening, Hospitalization)
  Sender: FDA-Public Use
  Company Number: 06-NIP00094

PATIENT
  Age: 65 Year
  Sex: Male
  Weight: 95.9811 kg

DRUGS (15)
  1. NIPENT [Suspect]
     Indication: CHRONIC LYMPHOCYTIC LEUKAEMIA
     Dosage: 8.36 MG (8.36 MG, QD), INTRAVENOUS
     Route: 042
     Dates: start: 20060531, end: 20060531
  2. CYTOXAN [Suspect]
     Indication: CHRONIC LYMPHOCYTIC LEUKAEMIA
     Dosage: 1254 MG (1254 MG, QD), INTRAVENOUS
     Route: 042
     Dates: start: 20060531, end: 20060531
  3. ALOXI (PALONOSETRON HYDROCHLORIDE (PALONOSETRON HYDROCHLORIDE) [Concomitant]
  4. LIPITOR [Concomitant]
  5. LISINOPRIL [Concomitant]
  6. TOPROL XL (METOPROLOL SUCCINATE) (METOPROLOL SUCCINATE) [Concomitant]
  7. LASIX [Concomitant]
  8. ECOTRIN (ACETYLSALICYLIC ACID) (ACETYLSALICYLIC ACID) [Concomitant]
  9. MULTI-VITAMINS [Concomitant]
  10. INSULIN (INSULIN) (INSULIN) [Concomitant]
  11. ALLOPURINOL (ALLOPURINOL) (ALLOPURINOL) [Concomitant]
  12. ATIVAN [Concomitant]
  13. BACTRIM DS (SULFAMETHOXAZOLE, TRIMETHOPRIM) (TABLETS) (SULFAMETHOXAZOL [Concomitant]
  14. COMPAZINE (PROCHLORPERAZINE EDISYLATE) (PROCHLORPERAZINE EDISYLATE) [Concomitant]
  15. ACYCLOVIR (ACICLOVIR) (ACICLOVIR) [Concomitant]

REACTIONS (19)
  - ANOREXIA [None]
  - BLOOD CHLORIDE DECREASED [None]
  - BLOOD GLUCOSE INCREASED [None]
  - BLOOD PH DECREASED [None]
  - BLOOD POTASSIUM INCREASED [None]
  - BLOOD SODIUM DECREASED [None]
  - BRADYCARDIA [None]
  - BUNDLE BRANCH BLOCK [None]
  - CHEST DISCOMFORT [None]
  - CHEST PAIN [None]
  - DYSPNOEA [None]
  - HYPOXIA [None]
  - MALAISE [None]
  - ORTHOPNOEA [None]
  - PCO2 INCREASED [None]
  - PLATELET COUNT DECREASED [None]
  - RENAL FAILURE [None]
  - TROPONIN T INCREASED [None]
  - WHITE BLOOD CELL COUNT INCREASED [None]
